FAERS Safety Report 18702029 (Version 1)
Quarter: 2021Q1

REPORT INFORMATION
  Report Type: Spontaneous
  Country: US (occurrence: US)
  Receive Date: 20210105
  Receipt Date: 20210105
  Transmission Date: 20210419
  Serious: No
  Sender: FDA-Public Use
  Company Number: None

PATIENT
  Age: 72 Year
  Sex: Male
  Weight: 70 kg

DRUGS (13)
  1. TECENTRIQ [Suspect]
     Active Substance: ATEZOLIZUMAB
     Indication: LUNG NEOPLASM MALIGNANT
     Dosage: ?          OTHER FREQUENCY:ONCE EVERY 3 WEEKS;?
     Route: 042
     Dates: start: 20200901, end: 20210105
  2. HEPARIN INJECTABLE [Concomitant]
  3. PNEUMOVAX 23 [Concomitant]
     Active Substance: PNEUMOCOCCAL VACCINE, POLYVALENT 23
  4. TAMSULOSIN [Concomitant]
     Active Substance: TAMSULOSIN
  5. GABAPENTIN. [Concomitant]
     Active Substance: GABAPENTIN
  6. NIFEDIPINE. [Concomitant]
     Active Substance: NIFEDIPINE
  7. ROSUVASTATIN. [Concomitant]
     Active Substance: ROSUVASTATIN
  8. AMMONIUM LACTATE. [Concomitant]
     Active Substance: AMMONIUM LACTATE
  9. MAGNESIUM SULFATE. [Concomitant]
     Active Substance: MAGNESIUM SULFATE
  10. FINASTERIDE. [Concomitant]
     Active Substance: FINASTERIDE
  11. NICOTINE STEP 1 [Concomitant]
  12. MULTIVITAMIN [Concomitant]
     Active Substance: VITAMINS
  13. MEROPENEM. [Concomitant]
     Active Substance: MEROPENEM

REACTIONS (1)
  - Disease progression [None]

NARRATIVE: CASE EVENT DATE: 20210105
